FAERS Safety Report 9095773 (Version 1)
Quarter: 2013Q1

REPORT INFORMATION
  Report Type: Spontaneous
  Country: PT (occurrence: None)
  Receive Date: 20130124
  Receipt Date: 20130124
  Transmission Date: 20140127
  Serious: Yes (Other)
  Sender: FDA-Public Use
  Company Number: 2013-00262

PATIENT
  Age: 48 Year
  Sex: Female

DRUGS (2)
  1. FLUOXETINE HYDROCHLORIDE (UNKNOWN) (FLUOXETINE HYDROCHLORIDE) UNK, UNKUNK [Suspect]
     Indication: DEPRESSION
  2. REDUCTIL [Suspect]
     Indication: DECREASED APPETITE

REACTIONS (5)
  - Cerebral vasoconstriction [None]
  - Drug interaction [None]
  - Headache [None]
  - Aphasia [None]
  - Serotonin syndrome [None]
